FAERS Safety Report 8816298 (Version 1)
Quarter: 2012Q4

REPORT INFORMATION
  Report Type: Spontaneous
  Country: US (occurrence: None)
  Receive Date: 20120927
  Receipt Date: 20120927
  Transmission Date: 20130627
  Serious: Yes (Hospitalization)
  Sender: FDA-Public Use
  Company Number: None

PATIENT
  Age: 73 Year
  Sex: Female
  Weight: 113 kg

DRUGS (1)
  1. VIIBRYD 40MG FOREST PARMACEUTICALS [Suspect]
     Route: 048

REACTIONS (11)
  - Hallucination [None]
  - Fall [None]
  - Confabulation [None]
  - Mental status changes [None]
  - Confusional state [None]
  - Agitation [None]
  - Aggression [None]
  - Tremor [None]
  - Mydriasis [None]
  - Mucosal dryness [None]
  - Flushing [None]
